FAERS Safety Report 10283773 (Version 3)
Quarter: 2015Q3

REPORT INFORMATION
  Report Type: Report from Study
  Country: DE (occurrence: DE)
  Receive Date: 20140708
  Receipt Date: 20150828
  Transmission Date: 20151125
  Serious: Yes (Hospitalization)
  Sender: FDA-Public Use
  Company Number: DE-ABBVIE-14P-062-1257183-00

PATIENT
  Age: 53 Year
  Sex: Female
  Weight: 89 kg

DRUGS (4)
  1. THYRONAJOD [Concomitant]
     Active Substance: LEVOTHYROXINE SODIUM\POTASSIUM IODIDE
     Indication: PRODUCT USED FOR UNKNOWN INDICATION
  2. NEBIVOLOL. [Concomitant]
     Active Substance: NEBIVOLOL
     Indication: PRODUCT USED FOR UNKNOWN INDICATION
  3. HUMIRA [Suspect]
     Active Substance: ADALIMUMAB
     Indication: RHEUMATOID ARTHRITIS
     Route: 058
     Dates: start: 20120410
  4. HUMIRA [Suspect]
     Active Substance: ADALIMUMAB
     Route: 058
     Dates: start: 20140301

REACTIONS (11)
  - Metatarsalgia [Unknown]
  - Joint dislocation [Unknown]
  - Pain in extremity [Unknown]
  - Synovial rupture [Recovered/Resolved]
  - Synovitis [Recovering/Resolving]
  - Foot deformity [Unknown]
  - Contusion [Recovering/Resolving]
  - Wound [Unknown]
  - Osteoarthritis [Unknown]
  - Synovial cyst [Recovered/Resolved]
  - Meniscus injury [Unknown]

NARRATIVE: CASE EVENT DATE: 20140805
